FAERS Safety Report 5392423-1 (Version None)
Quarter: 2007Q3

REPORT INFORMATION
  Report Type: 
  Country: None (occurrence: None)
  Receive Date: 20070720
  Receipt Date: 20070716
  Transmission Date: 20080115
  Serious: Yes (Death)
  Sender: FDA-Public Use
  Company Number: B0479597A

PATIENT
  Age: 12 Week
  Sex: Male

DRUGS (7)
  1. COMBIVIR [Suspect]
     Indication: ANTIVIRAL PROPHYLAXIS
     Dosage: 1TAB TWICE PER DAY
     Dates: start: 20070227, end: 20070611
  2. KALETRA [Suspect]
     Indication: ANTIVIRAL PROPHYLAXIS
     Dates: start: 20070227, end: 20070611
  3. COMBIVIR [Suspect]
     Dates: start: 20070319, end: 20070611
  4. KALETRA [Suspect]
     Dates: start: 20070319, end: 20070611
  5. ZIDOVUDINE [Suspect]
     Indication: ANTIVIRAL PROPHYLAXIS
     Dates: start: 20070319, end: 20070319
  6. ZIDOVUDINE [Suspect]
     Dosage: 4MGK TWICE PER DAY
     Route: 048
     Dates: start: 20070319
  7. NEVIRAPINE [Suspect]
     Indication: ANTIVIRAL PROPHYLAXIS
     Dosage: 6MG SINGLE DOSE
     Route: 048
     Dates: start: 20070319

REACTIONS (1)
  - DEATH [None]
